FAERS Safety Report 4576167-1 (Version None)
Quarter: 2005Q1

REPORT INFORMATION
  Report Type: 
  Country: None (occurrence: None)
  Receive Date: 20050201
  Receipt Date: 20050201
  Transmission Date: 20050727
  Serious: Yes (Death)
  Sender: FDA-Public Use
  Company Number: None

PATIENT
  Age: 69 Year
  Sex: Female
  Weight: 48.9885 kg

DRUGS (5)
  1. VIOXX [Suspect]
     Indication: OSTEOARTHRITIS
     Dosage: 1 A DAY ORALLY
     Route: 048
     Dates: start: 20020924, end: 20030407
  2. VIOXX [Suspect]
     Indication: OSTEOARTHRITIS
     Dosage: 1 A DAY ORALLY
     Route: 048
     Dates: start: 20040820, end: 20040901
  3. DIOVAN [Concomitant]
  4. ZOCOR [Concomitant]
  5. PREDNISONE [Concomitant]

REACTIONS (3)
  - CORONARY ARTERY DISEASE [None]
  - SUDDEN CARDIAC DEATH [None]
  - VASCULAR CALCIFICATION [None]
